FAERS Safety Report 4301516-9 (Version None)
Quarter: 2004Q1

REPORT INFORMATION
  Report Type: 
  Country: None (occurrence: None)
  Receive Date: 20040126
  Receipt Date: 20030930
  Transmission Date: 20041129
  Serious: No
  Sender: FDA-Public Use
  Company Number: USA030948688

PATIENT
  Age: 11 Year
  Sex: Female
  Weight: 68 kg

DRUGS (2)
  1. STRATTERA [Suspect]
     Indication: ATTENTION DEFICIT/HYPERACTIVITY DISORDER
     Dosage: 100 MG/IN THE EVENING
     Dates: start: 20030601
  2. ZYRTEC [Concomitant]

REACTIONS (2)
  - DRUG EFFECT DECREASED [None]
  - SOMNOLENCE [None]
